FAERS Safety Report 6411064-8 (Version None)
Quarter: 2009Q4

REPORT INFORMATION
  Report Type: 
  Country: None (occurrence: None)
  Receive Date: 20091022
  Receipt Date: 20091019
  Transmission Date: 20100525
  Serious: Yes (Death)
  Sender: FDA-Public Use
  Company Number: US-MERCK-0909USA02133

PATIENT
  Age: 78 Year
  Sex: Female
  Weight: 138 kg

DRUGS (6)
  1. ZETIA [Suspect]
     Indication: BLOOD CHOLESTEROL INCREASED
     Route: 048
     Dates: start: 20070101, end: 20090801
  2. PLAVIX [Concomitant]
     Route: 065
  3. ASPIRIN [Concomitant]
     Route: 065
  4. TOPROL-XL [Concomitant]
     Route: 065
  5. VERAPAMIL [Concomitant]
     Route: 065
  6. ANTIMICROBIAL (UNSPECIFIED) [Concomitant]
     Route: 065

REACTIONS (4)
  - DEATH [None]
  - INTERVERTEBRAL DISC DEGENERATION [None]
  - MUSCULAR WEAKNESS [None]
  - OSTEOARTHRITIS [None]
